FAERS Safety Report 18210590 (Version 1)
Quarter: 2020Q3

REPORT INFORMATION
  Report Type: Spontaneous
  Country: US (occurrence: US)
  Receive Date: 20200829
  Receipt Date: 20200829
  Transmission Date: 20201103
  Serious: No
  Sender: FDA-Public Use
  Company Number: US-ENDO PHARMACEUTICALS INC-2019-109650

PATIENT
  Sex: Female
  Weight: 108 kg

DRUGS (1)
  1. PREDNISONE. [Suspect]
     Active Substance: PREDNISONE
     Indication: AUTOIMMUNE DISORDER
     Dosage: UNK UNKNOWN, UNKNOWN, HEAVY DOSES
     Route: 065
     Dates: start: 2013

REACTIONS (3)
  - Osteopenia [Unknown]
  - Body height decreased [Unknown]
  - Spinal cord compression [Unknown]

NARRATIVE: CASE EVENT DATE: 2013
